FAERS Safety Report 21093960 (Version 1)
Quarter: 2022Q3

REPORT INFORMATION
  Report Type: Spontaneous
  Country: US (occurrence: None)
  Receive Date: 20220717
  Receipt Date: 20220717
  Transmission Date: 20221026
  Serious: No
  Sender: FDA-Public Use
  Company Number: None

PATIENT
  Age: 47 Year
  Sex: Female
  Weight: 83.25 kg

DRUGS (1)
  1. PAXLOVID [Suspect]
     Active Substance: NIRMATRELVIR\RITONAVIR
     Indication: SARS-CoV-2 test positive
     Dates: start: 20220708, end: 20220713

REACTIONS (8)
  - SARS-CoV-2 test positive [None]
  - Symptom recurrence [None]
  - Nasal congestion [None]
  - Oropharyngeal pain [None]
  - Fatigue [None]
  - Headache [None]
  - Myalgia [None]
  - Dysgeusia [None]

NARRATIVE: CASE EVENT DATE: 20220717
